FAERS Safety Report 7271271-1 (Version None)
Quarter: 2011Q1

REPORT INFORMATION
  Report Type: 
  Country: None (occurrence: None)
  Receive Date: 20110203
  Receipt Date: 20110125
  Transmission Date: 20110831
  Serious: Yes (Hospitalization, Other)
  Sender: FDA-Public Use
  Company Number: 2007BI001977

PATIENT
  Age: 45 Year
  Sex: Male
  Weight: 78 kg

DRUGS (3)
  1. AVONEX [Suspect]
     Route: 030
     Dates: start: 20030801
  2. CYMBALTA [Concomitant]
  3. AVONEX [Suspect]
     Indication: MULTIPLE SCLEROSIS
     Route: 030
     Dates: start: 20000101, end: 20030101

REACTIONS (7)
  - PULMONARY FIBROSIS [None]
  - PLEURAL MESOTHELIOMA [None]
  - MENINGIOMA [None]
  - HEADACHE [None]
  - CHEST PAIN [None]
  - HYPERTENSION [None]
  - VOMITING [None]
